FAERS Safety Report 10366704 (Version 1)
Quarter: 2014Q3

REPORT INFORMATION
  Report Type: Spontaneous
  Country: US (occurrence: US)
  Receive Date: 20140806
  Receipt Date: 20140806
  Transmission Date: 20150326
  Serious: Yes (Hospitalization)
  Sender: FDA-Public Use
  Company Number: US-PFIZER INC-2014219495

PATIENT
  Sex: Female

DRUGS (1)
  1. VENLAFAXINE HCL [Suspect]
     Active Substance: VENLAFAXINE HYDROCHLORIDE
     Dosage: 75 MG, UNK

REACTIONS (6)
  - Formication [Unknown]
  - Loss of consciousness [Unknown]
  - Skin disorder [Unknown]
  - Hypersensitivity [Unknown]
  - Abnormal behaviour [Unknown]
  - Dyspnoea [Unknown]
